FAERS Safety Report 9250514 (Version 1)
Quarter: 2013Q1

REPORT INFORMATION
  Report Type: Spontaneous
  Country: US (occurrence: None)
  Receive Date: 20130305
  Receipt Date: 20130305
  Transmission Date: 20140127
  Serious: Yes (Other)
  Sender: FDA-Public Use
  Company Number: 163-21880-12063384

PATIENT
  Age: 81 Year
  Sex: Female
  Weight: 96.62 kg

DRUGS (21)
  1. REVLIMID [Suspect]
     Indication: PLASMA CELL MYELOMA
     Dosage: 10MG, 1 IN 1 D, PO
     Route: 048
     Dates: start: 20110823, end: 201206
  2. PANTOPRAZOLE (PANTOPRAZOLE) [Concomitant]
  3. AMLODIPINE (AMLODIPINE) [Concomitant]
  4. FLUTICASONE (FLUTICASONE) [Concomitant]
  5. DEXAMETHASONE (DEXAMETHASONE) [Concomitant]
  6. TRAVATAN (TRAVOPROST) [Concomitant]
  7. DIOVAN (VALSARTAN) [Concomitant]
  8. MUPIROCIN (MUPIROCIN) [Concomitant]
  9. NITROFURANTOIN [Concomitant]
  10. CEPHALEXIN (CEPHALEXIN) [Concomitant]
  11. IPRATROPIUM-ALBUTEROL (COMBIVENT) [Concomitant]
  12. ZITHROMAX (AZXITHROMYCIN) [Concomitant]
  13. MELOXICAM (MELOXICAM) [Concomitant]
  14. OMEPRAZOLE (OMEPRAZOLE) [Concomitant]
  15. FLUCONAZOLE (FLUCONAZOLE) [Concomitant]
  16. BACTRIM DS (BACTRIM) [Concomitant]
  17. NEXIUM [Concomitant]
  18. MAXZIDE (DYAZIDE) [Concomitant]
  19. LORCET (VICODIN) [Concomitant]
  20. NYSTOP (NYSTATIN) [Concomitant]
  21. BRIMONIDINE (BRIMONIDINE) [Concomitant]

REACTIONS (1)
  - Plasma cell myeloma [None]
